FAERS Safety Report 25247306 (Version 1)
Quarter: 2025Q2

REPORT INFORMATION
  Report Type: Spontaneous
  Country: US (occurrence: US)
  Receive Date: 20250428
  Receipt Date: 20250428
  Transmission Date: 20250716
  Serious: No
  Sender: MYLAN
  Company Number: US-MYLANLABS-2025M1033820

PATIENT
  Sex: Female

DRUGS (2)
  1. ESTRADIOL [Suspect]
     Active Substance: ESTRADIOL
     Indication: Hormone replacement therapy
     Dosage: 1.5 MILLIGRAM, QW (ONCE A WEEK)
  2. ESTRADIOL [Suspect]
     Active Substance: ESTRADIOL
     Indication: Incontinence

REACTIONS (2)
  - Off label use [Unknown]
  - Product quality issue [Unknown]
